FAERS Safety Report 13828304 (Version 1)
Quarter: 2017Q3

REPORT INFORMATION
  Report Type: Spontaneous
  Country: US (occurrence: US)
  Receive Date: 20170802
  Receipt Date: 20170802
  Transmission Date: 20171127
  Serious: No
  Sender: FDA-Public Use
  Company Number: None

PATIENT
  Age: 39 Year
  Sex: Male

DRUGS (1)
  1. STELARA [Suspect]
     Active Substance: USTEKINUMAB
     Dosage: 90MG Q 8 WEEKS SQ
     Route: 058
     Dates: start: 20170712, end: 20170802

REACTIONS (1)
  - Headache [None]

NARRATIVE: CASE EVENT DATE: 20170802
